FAERS Safety Report 9917108 (Version 1)
Quarter: 2014Q1

REPORT INFORMATION
  Report Type: Spontaneous
  Country: US (occurrence: US)
  Receive Date: 20140221
  Receipt Date: 20140221
  Transmission Date: 20141002
  Serious: Yes (Other)
  Sender: FDA-Public Use
  Company Number: US-JNJFOC-20140207884

PATIENT
  Age: 67 Year
  Sex: Female
  Weight: 104.33 kg

DRUGS (3)
  1. XARELTO [Suspect]
     Indication: PULMONARY VASCULAR DISORDER
     Route: 048
     Dates: start: 20140203, end: 20140209
  2. SANTAX [Concomitant]
     Indication: BLOOD PRESSURE
     Route: 048
  3. SANTAX [Concomitant]
     Indication: DIABETES MELLITUS
     Route: 048

REACTIONS (5)
  - Eye swelling [Recovering/Resolving]
  - Pharyngeal oedema [Recovering/Resolving]
  - Swelling [Recovering/Resolving]
  - Weight fluctuation [Recovering/Resolving]
  - Off label use [Unknown]
